FAERS Safety Report 8954785 (Version 1)
Quarter: 2012Q4

REPORT INFORMATION
  Report Type: 
  Country: GB (occurrence: GB)
  Receive Date: 20121207
  Receipt Date: 20121207
  Transmission Date: 20130627
  Serious: Yes (Death, Life-Threatening, Hospitalization, Other)
  Sender: FDA-Public Use
  Company Number: GB-ABBOTT-12P-167-1018152-00

PATIENT
  Age: 49 Year
  Sex: Male
  Weight: 73 kg

DRUGS (7)
  1. CLARITHROMYCIN [Suspect]
     Indication: PRODUCT USED FOR UNKNOWN INDICATION
  2. OFLOXACIN [Suspect]
     Indication: PROSTATITIS
     Route: 048
     Dates: start: 20091123, end: 20100113
  3. TRIMETHOPRIM [Suspect]
     Indication: PRODUCT USED FOR UNKNOWN INDICATION
  4. CIPROFLOXACIN [Suspect]
     Indication: PROSTATITIS
     Route: 048
     Dates: start: 20091123, end: 20100113
  5. AMOXICILLIN\CLAVULANATE POTASSIUM [Suspect]
     Indication: PRODUCT USED FOR UNKNOWN INDICATION
  6. NAPROXEN [Suspect]
     Indication: PRODUCT USED FOR UNKNOWN INDICATION
  7. VITAMINS [Concomitant]
     Indication: VITAMIN SUPPLEMENTATION

REACTIONS (69)
  - Completed suicide [Fatal]
  - Throat tightness [Fatal]
  - Nausea [Fatal]
  - Drug hypersensitivity [Fatal]
  - Atrophy [Fatal]
  - Motion sickness [Unknown]
  - Musculoskeletal stiffness [Fatal]
  - Pain in extremity [Fatal]
  - Anxiety [Fatal]
  - Feeling abnormal [Fatal]
  - Asthenia [Fatal]
  - Mental disorder [Fatal]
  - Palpitations [Fatal]
  - Insomnia [Fatal]
  - Depression [Fatal]
  - Fatigue [Fatal]
  - Paraesthesia [Fatal]
  - Tinnitus [Fatal]
  - Post-traumatic stress disorder [Fatal]
  - Panic reaction [Fatal]
  - Convulsion [Unknown]
  - Dyspnoea [Fatal]
  - Pain [Fatal]
  - Headache [Fatal]
  - Rash papular [Fatal]
  - Muscle spasms [Fatal]
  - Dysphagia [Fatal]
  - Tremor [Fatal]
  - Neuralgia [Fatal]
  - Chest pain [Fatal]
  - Musculoskeletal stiffness [Fatal]
  - Bone pain [Fatal]
  - Speech disorder [Fatal]
  - Muscle atrophy [Fatal]
  - Cognitive disorder [Fatal]
  - Paraesthesia [Fatal]
  - Anxiety [Fatal]
  - Arthralgia [Fatal]
  - Anhedonia [Fatal]
  - Hyperacusis [Fatal]
  - Agitation [Fatal]
  - Weight decreased [Fatal]
  - Prostatitis [Fatal]
  - Decreased appetite [Fatal]
  - Balance disorder [Fatal]
  - Hypoaesthesia [Fatal]
  - Neuropathy peripheral [Fatal]
  - Headache [Fatal]
  - Burning sensation [Fatal]
  - Malaise [Fatal]
  - Tendonitis [Fatal]
  - Muscle contractions involuntary [Fatal]
  - Neck pain [Fatal]
  - Constipation [Fatal]
  - Diarrhoea [Fatal]
  - Dysaesthesia [Fatal]
  - Tachycardia [Fatal]
  - Arrhythmia [Fatal]
  - Fibromyalgia [Fatal]
  - Oropharyngeal pain [Fatal]
  - Heart sounds abnormal [Unknown]
  - Wheezing [Unknown]
  - Testicular pain [Unknown]
  - Pyrexia [Unknown]
  - Pelvic pain [Unknown]
  - Drug hypersensitivity [Unknown]
  - Impaired work ability [Unknown]
  - Family stress [Unknown]
  - Epididymitis [Unknown]
